FAERS Safety Report 7895252-X (Version None)
Quarter: 2011Q4

REPORT INFORMATION
  Report Type: 
  Country: None (occurrence: None)
  Receive Date: 20111106
  Receipt Date: 20110824
  Transmission Date: 20120403
  Serious: No
  Sender: FDA-Public Use
  Company Number: US-AMGEN-USASP2011043434

PATIENT
  Age: 59 Year
  Sex: Female

DRUGS (1)
  1. ENBREL [Suspect]
     Indication: RHEUMATOID ARTHRITIS
     Dosage: 75 MG, QWK
     Dates: start: 20030401

REACTIONS (3)
  - OSTEOARTHRITIS [None]
  - SPINAL COLUMN STENOSIS [None]
  - MALABSORPTION [None]
